FAERS Safety Report 8547244-5 (Version None)
Quarter: 2012Q3

REPORT INFORMATION
  Report Type: 
  Country: None (occurrence: None)
  Receive Date: 20120727
  Receipt Date: 20120301
  Transmission Date: 20120928
  Serious: No
  Sender: FDA-Public Use
  Company Number: US-ASTRAZENECA-2012SE14383

PATIENT
  Sex: Female

DRUGS (3)
  1. SEROQUEL XR [Suspect]
     Route: 048
  2. TRAZODONE HCL [Concomitant]
  3. EFFEXOR [Concomitant]

REACTIONS (2)
  - AMMONIA INCREASED [None]
  - ABDOMINAL DISCOMFORT [None]
